FAERS Safety Report 7486282-0 (Version None)
Quarter: 2011Q2

REPORT INFORMATION
  Report Type: 
  Country: None (occurrence: None)
  Receive Date: 20110517
  Receipt Date: 20110412
  Transmission Date: 20111010
  Serious: No
  Sender: FDA-Public Use
  Company Number: A0922687A

PATIENT
  Age: 60 Year
  Sex: Male

DRUGS (4)
  1. EXTRA STRENGTH TYLENOL [Concomitant]
  2. VOTRIENT [Suspect]
     Dosage: 800MG PER DAY
     Route: 048
     Dates: start: 20110311
  3. LEVOXYL [Concomitant]
     Indication: THYROID DISORDER
  4. VICODIN [Concomitant]

REACTIONS (2)
  - DIARRHOEA [None]
  - FATIGUE [None]
